FAERS Safety Report 9019806 (Version 1)
Quarter: 2013Q1

REPORT INFORMATION
  Report Type: Spontaneous
  Country: GB (occurrence: GB)
  Receive Date: 20130118
  Receipt Date: 20130118
  Transmission Date: 20140127
  Serious: Yes (Life-Threatening)
  Sender: FDA-Public Use
  Company Number: GB-ROCHE-1180874

PATIENT
  Age: 20 Year
  Sex: Female
  Weight: 52 kg

DRUGS (2)
  1. ROACCUTANE [Suspect]
     Indication: ACNE
     Route: 048
     Dates: start: 20111003, end: 20120131
  2. CITALOPRAM [Concomitant]

REACTIONS (3)
  - Depression [Not Recovered/Not Resolved]
  - Intentional self-injury [Unknown]
  - Suicidal ideation [Unknown]
